FAERS Safety Report 5430412-9 (Version None)
Quarter: 2007Q3

REPORT INFORMATION
  Report Type: 
  Country: None (occurrence: None)
  Receive Date: 20070828
  Receipt Date: 20070821
  Transmission Date: 20080115
  Serious: Yes (Disabling, Other)
  Sender: FDA-Public Use
  Company Number: US021086

PATIENT
  Sex: Female

DRUGS (1)
  1. PROVIGIL [Suspect]
     Dosage: ORAL
     Route: 048
     Dates: start: 20060901

REACTIONS (3)
  - IMPAIRED GASTRIC EMPTYING [None]
  - MIGRAINE [None]
  - TARDIVE DYSKINESIA [None]
